FAERS Safety Report 6964012-6 (Version None)
Quarter: 2010Q3

REPORT INFORMATION
  Report Type: 
  Country: None (occurrence: None)
  Receive Date: 20100902
  Receipt Date: 20100902
  Transmission Date: 20110219
  Serious: Yes (Death)
  Sender: FDA-Public Use
  Company Number: None

PATIENT
  Age: 61 Year
  Sex: Male
  Weight: 94.8 kg

DRUGS (1)
  1. ELITEK [Suspect]
     Indication: HYPERURICAEMIA
     Dosage: 10.5 MG ONCE IV
     Route: 042
     Dates: start: 20100710, end: 20100710

REACTIONS (3)
  - HYPOPERFUSION [None]
  - HYPOTENSION [None]
  - METABOLIC ACIDOSIS [None]
